FAERS Safety Report 8340672-2 (Version None)
Quarter: 2012Q2

REPORT INFORMATION
  Report Type: 
  Country: None (occurrence: None)
  Receive Date: 20120503
  Receipt Date: 20120503
  Transmission Date: 20120825
  Serious: Yes (Hospitalization)
  Sender: FDA-Public Use
  Company Number: None

PATIENT
  Sex: Male
  Weight: 65.8623 kg

DRUGS (2)
  1. TAXOTERE [Suspect]
     Indication: BLADDER TRANSITIONAL CELL CARCINOMA
     Dosage: 75 MG; INTRAVENOUS
     Route: 042
     Dates: start: 20120417
  2. LAPATINIB [Suspect]
     Indication: BLADDER TRANSITIONAL CELL CARCINOMA
     Dosage: 1250 MG; ORAL
     Route: 048
     Dates: start: 20120426

REACTIONS (3)
  - VOMITING [None]
  - DIARRHOEA [None]
  - NAUSEA [None]
